FAERS Safety Report 12356902 (Version 1)
Quarter: 2016Q2

REPORT INFORMATION
  Report Type: Spontaneous
  Country: US (occurrence: US)
  Receive Date: 20160511
  Receipt Date: 20160511
  Transmission Date: 20160815
  Serious: Yes (Other)
  Sender: FDA-Public Use
  Company Number: US-PFIZER INC-2016249616

PATIENT
  Age: 36 Year
  Sex: Male
  Weight: 86.18 kg

DRUGS (1)
  1. VIAGRA [Suspect]
     Active Substance: SILDENAFIL CITRATE
     Indication: ERECTILE DYSFUNCTION
     Dosage: 4 PILLS OF VIAGRA 100 MG
     Route: 048

REACTIONS (3)
  - Intentional product misuse [Unknown]
  - Erection increased [Unknown]
  - Incorrect dose administered [Unknown]
